FAERS Safety Report 7293689-3 (Version None)
Quarter: 2011Q1

REPORT INFORMATION
  Report Type: 
  Country: None (occurrence: None)
  Receive Date: 20110203
  Receipt Date: 20110121
  Transmission Date: 20110831
  Serious: Yes (Other)
  Sender: FDA-Public Use
  Company Number: DE-2010-2988

PATIENT
  Sex: Female

DRUGS (6)
  1. FOLSAN [Concomitant]
  2. NAVELBINE [Suspect]
     Indication: WRONG DRUG ADMINISTERED
     Dosage: 53.7 MG/M2 ONCE IV
     Route: 042
     Dates: start: 20101223, end: 20101223
  3. ZOMETA [Concomitant]
  4. ALIMTA. MFR: NOT SPECIFIED [Suspect]
     Indication: NON-SMALL CELL LUNG CANCER
     Dates: end: 20101202
  5. VITAMIN B-12 [Concomitant]
  6. FORTECORTIN [Concomitant]

REACTIONS (4)
  - INCORRECT DOSE ADMINISTERED [None]
  - FATIGUE [None]
  - MUCOSAL INFLAMMATION [None]
  - CONSTIPATION [None]
